FAERS Safety Report 16018697 (Version 1)
Quarter: 2019Q1

REPORT INFORMATION
  Report Type: Report from Study
  Country: CA (occurrence: CA)
  Receive Date: 20190228
  Receipt Date: 20190228
  Transmission Date: 20190418
  Serious: Yes (Other)
  Sender: FDA-Public Use
  Company Number: CA-GLAXOSMITHKLINE-CA2019GSK016374

PATIENT
  Sex: Female

DRUGS (1)
  1. MEPOLIZUMAB [Suspect]
     Active Substance: MEPOLIZUMAB
     Indication: ASTHMA
     Dosage: 100 MG, Z,MONTHLY
     Route: 042

REACTIONS (10)
  - Eosinophil count abnormal [Unknown]
  - Diplopia [Unknown]
  - Abdominal discomfort [Unknown]
  - Weight decreased [Unknown]
  - Vomiting [Unknown]
  - Vasculitis [Unknown]
  - Vision blurred [Unknown]
  - Intracranial pressure increased [Unknown]
  - Nausea [Unknown]
  - Visual impairment [Unknown]

NARRATIVE: CASE EVENT DATE: 2018
